FAERS Safety Report 24669372 (Version 1)
Quarter: 2024Q4

REPORT INFORMATION
  Report Type: Spontaneous
  Country: US (occurrence: US)
  Receive Date: 20241127
  Receipt Date: 20241127
  Transmission Date: 20250114
  Serious: Yes (Hospitalization)
  Sender: AMGEN
  Company Number: US-AMGEN-USASP2024232380

PATIENT
  Sex: Female

DRUGS (4)
  1. BLINCYTO [Suspect]
     Active Substance: BLINATUMOMAB
     Indication: Philadelphia chromosome negative
     Dosage: UNK UNK, CONTINUING (CONTINUOUS INFUSION)
     Route: 065
  2. BLINCYTO [Suspect]
     Active Substance: BLINATUMOMAB
     Indication: Acute lymphocytic leukaemia
  3. DEXAMETHASONE [Concomitant]
     Active Substance: DEXAMETHASONE
  4. METHOTREXATE [Concomitant]
     Active Substance: METHOTREXATE
     Indication: Chemotherapy
     Dosage: UNK
     Route: 037

REACTIONS (1)
  - Immune effector cell-associated neurotoxicity syndrome [Unknown]

NARRATIVE: CASE EVENT DATE: 20241120
